FAERS Safety Report 7643935-9 (Version None)
Quarter: 2011Q3

REPORT INFORMATION
  Report Type: 
  Country: None (occurrence: None)
  Receive Date: 20110729
  Receipt Date: 20110718
  Transmission Date: 20111222
  Serious: Yes (Other)
  Sender: FDA-Public Use
  Company Number: US-CELGENEUS-163-21880-11072100

PATIENT
  Sex: Female
  Weight: 72.64 kg

DRUGS (6)
  1. REVLIMID [Suspect]
     Indication: MULTIPLE MYELOMA
     Dosage: 25 MILLIGRAM
     Route: 048
     Dates: start: 20110711, end: 20110716
  2. ASPIRIN [Concomitant]
     Dosage: 325 MILLIGRAM
     Route: 048
  3. PANTOPRAZOLE SODIUM [Concomitant]
     Dosage: 20 MILLIGRAM
     Route: 048
  4. DECADRON [Concomitant]
     Dosage: .5 MILLIGRAM
     Route: 048
  5. MICARDIS [Concomitant]
     Dosage: 80 MILLIGRAM
     Route: 048
  6. POTASSIUM [Concomitant]
     Dosage: 90 MILLIGRAM
     Route: 048

REACTIONS (8)
  - NAUSEA [None]
  - THROAT TIGHTNESS [None]
  - INFLUENZA LIKE ILLNESS [None]
  - ASTHENIA [None]
  - PALPITATIONS [None]
  - VOMITING [None]
  - DYSPNOEA [None]
  - SOMNOLENCE [None]
